FAERS Safety Report 23687283 (Version 3)
Quarter: 2024Q2

REPORT INFORMATION
  Report Type: Spontaneous
  Country: JP (occurrence: JP)
  Receive Date: 20240329
  Receipt Date: 20240508
  Transmission Date: 20240716
  Serious: Yes (Hospitalization)
  Sender: FDA-Public Use
  Company Number: JP-BAYER-2024A045296

PATIENT
  Age: 76 Year
  Sex: Male

DRUGS (8)
  1. NUBEQA [Suspect]
     Active Substance: DAROLUTAMIDE
     Dosage: DAILY DOSE 1200 MG
     Dates: start: 20240214, end: 20240221
  2. DOCETAXEL [Suspect]
     Active Substance: DOCETAXEL\DOCETAXEL ANHYDROUS
     Dosage: DAILY DOSE 6.43 MG
     Dates: start: 20240214
  3. DEGARELIX [Suspect]
     Active Substance: DEGARELIX
     Dosage: DAILY DOSE 7.06 MG
     Dates: start: 20240214
  4. AZOSEMIDE [Concomitant]
     Active Substance: AZOSEMIDE
     Dosage: DAILY DOSE 15 MG
     Dates: start: 20240213
  5. EPLERENONE [Concomitant]
     Active Substance: EPLERENONE
     Dosage: DAILY DOSE 50 MG
     Dates: start: 20240213, end: 20240220
  6. OLMESARTAN [Concomitant]
     Active Substance: OLMESARTAN
     Dosage: DAILY DOSE 20 MG
     Dates: start: 20240213, end: 20240221
  7. DOXAZOSIN [Concomitant]
     Active Substance: DOXAZOSIN MESYLATE
     Dosage: DAILY DOSE 1 MG
     Dates: start: 20240213, end: 20240220
  8. ELIQUIS [Concomitant]
     Active Substance: APIXABAN
     Dosage: DAILY DOSE 5 MG
     Dates: start: 20240213

REACTIONS (7)
  - Renal impairment [Recovering/Resolving]
  - Neutrophil count decreased [Recovering/Resolving]
  - Dehydration [Recovering/Resolving]
  - Decreased appetite [None]
  - Blood pressure decreased [Recovering/Resolving]
  - Blood creatinine increased [Recovering/Resolving]
  - Blood urea increased [Recovering/Resolving]

NARRATIVE: CASE EVENT DATE: 20240101
